FAERS Safety Report 18037105 (Version 2)
Quarter: 2020Q3

REPORT INFORMATION
  Report Type: Report from Study
  Country: US (occurrence: US)
  Receive Date: 20200717
  Receipt Date: 20200831
  Transmission Date: 20201103
  Serious: Yes (Death, Hospitalization)
  Sender: FDA-Public Use
  Company Number: US-JNJFOC-20170421812

PATIENT
  Age: 75 Year
  Sex: Male
  Weight: 80.81 kg

DRUGS (2)
  1. REMICADE [Suspect]
     Active Substance: INFLIXIMAB
     Indication: PSORIASIS
     Route: 042
     Dates: start: 20121016, end: 20160725
  2. TACLONEX [Concomitant]
     Active Substance: BETAMETHASONE DIPROPIONATE\CALCIPOTRIENE\CALCIPOTRIENE HYDRATE
     Route: 065

REACTIONS (13)
  - Hypertensive heart disease [Unknown]
  - Blood pressure fluctuation [Unknown]
  - Pneumonia [Recovered/Resolved]
  - Acute respiratory failure [Recovered/Resolved]
  - Left ventricular failure [Fatal]
  - Cardiac failure congestive [Recovered/Resolved]
  - Atrial fibrillation [Unknown]
  - Encephalomalacia [Not Recovered/Not Resolved]
  - Renal injury [Recovered/Resolved]
  - Left ventricular failure [Not Recovered/Not Resolved]
  - Dementia [Unknown]
  - Dyslipidaemia [Unknown]
  - Encephalopathy [Unknown]

NARRATIVE: CASE EVENT DATE: 20170125
